FAERS Safety Report 10520186 (Version 2)
Quarter: 2015Q3

REPORT INFORMATION
  Report Type: Spontaneous
  Country: US (occurrence: US)
  Receive Date: 20141015
  Receipt Date: 20150818
  Transmission Date: 20151125
  Serious: No
  Sender: FDA-Public Use
  Company Number: US-GILEAD-2014-0118545

PATIENT
  Age: 52 Year
  Sex: Female

DRUGS (6)
  1. LETAIRIS [Suspect]
     Active Substance: AMBRISENTAN
     Indication: PRODUCT USED FOR UNKNOWN INDICATION
     Dosage: 5 MG, QD
     Route: 065
     Dates: start: 20140814
  2. VELETRI [Concomitant]
     Active Substance: EPOPROSTENOL
  3. SUSTIVA [Concomitant]
     Active Substance: EFAVIRENZ
  4. FUROSEMIDE. [Concomitant]
     Active Substance: FUROSEMIDE
  5. SILDENAFIL. [Concomitant]
     Active Substance: SILDENAFIL
  6. DIGOXIN. [Concomitant]
     Active Substance: DIGOXIN

REACTIONS (1)
  - Nasal congestion [Unknown]
